FAERS Safety Report 4564408-6 (Version None)
Quarter: 2005Q1

REPORT INFORMATION
  Report Type: 
  Country: None (occurrence: None)
  Receive Date: 20050128
  Receipt Date: 20050119
  Transmission Date: 20050727
  Serious: Yes (Death, Hospitalization)
  Sender: FDA-Public Use
  Company Number: US-JNJFOC-20041006580

PATIENT
  Sex: Female
  Weight: 27.22 kg

DRUGS (21)
  1. RISPERDAL [Suspect]
     Route: 049
  2. RISPERDAL [Suspect]
     Indication: DRUG USE FOR UNKNOWN INDICATION
     Route: 049
  3. POTASSIUM CHLORIDE [Concomitant]
  4. LIBRAX [Concomitant]
  5. LIBRAX [Concomitant]
  6. PANCREASE MT 10 [Concomitant]
  7. PANCREASE MT 10 [Concomitant]
  8. PANCREASE MT 10 [Concomitant]
  9. NEURONTIN [Concomitant]
  10. MULTI-VITAMINS [Concomitant]
  11. MULTI-VITAMINS [Concomitant]
  12. MULTI-VITAMINS [Concomitant]
  13. MULTI-VITAMINS [Concomitant]
  14. MULTI-VITAMINS [Concomitant]
  15. MULTI-VITAMINS [Concomitant]
  16. MULTI-VITAMINS [Concomitant]
  17. MULTI-VITAMINS [Concomitant]
  18. VITAMIN E [Concomitant]
  19. ZINC 220 [Concomitant]
  20. DARVOCET-N 100 [Concomitant]
  21. DARVOCET-N 100 [Concomitant]

REACTIONS (12)
  - ANAEMIA [None]
  - ANOREXIA NERVOSA [None]
  - ASCITES [None]
  - DEHYDRATION [None]
  - ELECTROLYTE IMBALANCE [None]
  - FALL [None]
  - HYPOXIA [None]
  - MALNUTRITION [None]
  - NON-CARDIAC CHEST PAIN [None]
  - PLEURAL EFFUSION [None]
  - RENAL CELL CARCINOMA STAGE UNSPECIFIED [None]
  - WEIGHT DECREASED [None]
